FAERS Safety Report 21237868 (Version 1)
Quarter: 2022Q3

REPORT INFORMATION
  Report Type: Spontaneous
  Country: US (occurrence: US)
  Receive Date: 20220822
  Receipt Date: 20220822
  Transmission Date: 20221027
  Serious: Yes (Other)
  Sender: FDA-Public Use
  Company Number: US-PFIZER INC-PV202200046710

PATIENT
  Age: 72 Year

DRUGS (2)
  1. TIKOSYN [Suspect]
     Active Substance: DOFETILIDE
     Indication: Atrial fibrillation
     Dosage: UNK, 1X/DAY (DOSING IS CORRECT AT ONCE DAILY (DUE TO PROLONGED QT WITH BID DOSING))
     Dates: start: 20220818
  2. TIKOSYN [Suspect]
     Active Substance: DOFETILIDE
     Indication: Atrial tachycardia

REACTIONS (1)
  - Electrocardiogram QT prolonged [Unknown]
